FAERS Safety Report 9863129 (Version 1)
Quarter: 2014Q1

REPORT INFORMATION
  Report Type: Spontaneous
  Country: US (occurrence: US)
  Receive Date: 20140203
  Receipt Date: 20140203
  Transmission Date: 20141002
  Serious: No
  Sender: FDA-Public Use
  Company Number: PHEH2014US002018

PATIENT
  Sex: Female

DRUGS (8)
  1. TASIGNA [Suspect]
     Dosage: UNK UKN, UNK
  2. SPRYCEL//DASATINIB [Suspect]
     Dosage: UNK UKN, UNK
  3. LISINOPRIL [Concomitant]
     Dosage: UNK UKN, UNK
  4. NORVASC [Concomitant]
     Dosage: UNK UKN, UNK
  5. METOPROLOL TARTRATE [Concomitant]
     Dosage: UNK UKN, UNK
  6. FAMOTIDINE [Concomitant]
     Dosage: UNK UKN, UNK
  7. ZOFRAN [Concomitant]
     Dosage: UNK UKN, UNK
  8. HYDROCHLOROTHIAZIDE [Concomitant]
     Dosage: UNK UKN, UNK

REACTIONS (2)
  - Blood pressure abnormal [Unknown]
  - Hiatus hernia [Unknown]
